FAERS Safety Report 5757822-4 (Version None)
Quarter: 2008Q2

REPORT INFORMATION
  Report Type: 
  Country: None (occurrence: None)
  Receive Date: 20080603
  Receipt Date: 20080526
  Transmission Date: 20081010
  Serious: Yes (Hospitalization)
  Sender: FDA-Public Use
  Company Number: PHHY2008FR09555

PATIENT
  Age: 52 Year
  Sex: Female

DRUGS (3)
  1. TAREG [Suspect]
     Dosage: UNK
     Route: 048
     Dates: end: 20080405
  2. RIVOTRIL [Suspect]
     Dosage: UNK
     Route: 048
     Dates: end: 20080405
  3. EFFEXOR [Suspect]
     Dosage: UNK
     Route: 048
     Dates: end: 20080405

REACTIONS (11)
  - AMNESIA [None]
  - CONFUSIONAL STATE [None]
  - DEPRESSED LEVEL OF CONSCIOUSNESS [None]
  - DRUG SCREEN POSITIVE [None]
  - GLASGOW COMA SCALE ABNORMAL [None]
  - HYPONATRAEMIA [None]
  - LUNG DISORDER [None]
  - OVERDOSE [None]
  - PSYCHOMOTOR SKILLS IMPAIRED [None]
  - PYREXIA [None]
  - TONGUE BITING [None]
